FAERS Safety Report 4988293-3 (Version None)
Quarter: 2006Q2

REPORT INFORMATION
  Report Type: 
  Country: None (occurrence: None)
  Receive Date: 20060425
  Receipt Date: 20060413
  Transmission Date: 20061013
  Serious: Yes (Hospitalization, Other)
  Sender: FDA-Public Use
  Company Number: 2006029256

PATIENT
  Age: 56 Year
  Sex: Male
  Weight: 100 kg

DRUGS (10)
  1. ZYVOX [Suspect]
     Indication: PNEUMONIA
     Dosage: 1800 MG, ORAL
     Route: 048
     Dates: start: 20051109, end: 20060101
  2. LEVOTHYROXINE SODIUM [Concomitant]
  3. TORSEMIDE [Concomitant]
  4. TRAZODONE HCL [Concomitant]
  5. ALL OTHER THERAPEUTIC PRODUCTS (ALL OTHER THERAPEUTIC PRODUCTS) [Concomitant]
  6. OMEPRAZOLE [Concomitant]
  7. SPIRONOLACTONE [Concomitant]
  8. IBUPROFEN [Concomitant]
  9. FUROSEMIDE [Concomitant]
  10. ALLOPURINOL [Concomitant]

REACTIONS (13)
  - CHILAIDITI'S SYNDROME [None]
  - COR PULMONALE [None]
  - GASTRITIS EROSIVE [None]
  - INFECTION [None]
  - INTERVERTEBRAL DISCITIS [None]
  - NICOTINE DEPENDENCE [None]
  - PANCYTOPENIA [None]
  - PLEURAL EFFUSION [None]
  - PULMONARY HYPERTENSION [None]
  - RECTAL POLYP [None]
  - RIGHT VENTRICULAR FAILURE [None]
  - THERAPY NON-RESPONDER [None]
  - WEIGHT DECREASED [None]
